FAERS Safety Report 23532385 (Version 1)
Quarter: 2024Q1

REPORT INFORMATION
  Report Type: Spontaneous
  Country: US (occurrence: US)
  Receive Date: 20240216
  Receipt Date: 20240216
  Transmission Date: 20240410
  Serious: No
  Sender: FDA-Public Use
  Company Number: US-CMP PHARMA-2023CMP00050

PATIENT

DRUGS (2)
  1. SODIUM POLYSTYRENE SULFONATE [Suspect]
     Active Substance: SODIUM POLYSTYRENE SULFONATE
     Indication: End stage renal disease
     Dosage: UNK ^BIGGER DOSE^
  2. SODIUM POLYSTYRENE SULFONATE [Suspect]
     Active Substance: SODIUM POLYSTYRENE SULFONATE
     Dosage: UNK ^SMALLER DOSE^

REACTIONS (1)
  - Polyuria [Recovering/Resolving]
